FAERS Safety Report 5724630-X (Version None)
Quarter: 2008Q2

REPORT INFORMATION
  Report Type: 
  Country: None (occurrence: None)
  Receive Date: 20080430
  Receipt Date: 20080430
  Transmission Date: 20081010
  Serious: No
  Sender: FDA-Public Use
  Company Number: None

PATIENT
  Age: 39 Year
  Sex: Male
  Weight: 86.3 kg

DRUGS (6)
  1. AZTREONAM [Suspect]
     Indication: LIVER ABSCESS
     Dosage: 2GM IV Q8
     Route: 042
     Dates: start: 20070928, end: 20071015
  2. VANCOMYCIN HCL [Suspect]
     Indication: LIVER ABSCESS
     Dosage: 1 GM IV Q12
     Route: 042
     Dates: start: 20070919, end: 20071017
  3. PREDNISONE TAB [Concomitant]
  4. RANITIDINE [Concomitant]
  5. PERCOCET [Concomitant]
  6. ITRACONAZOLE [Concomitant]

REACTIONS (2)
  - LEUKOPENIA [None]
  - PERICARDITIS [None]
